FAERS Safety Report 19473141 (Version 1)
Quarter: 2021Q2

REPORT INFORMATION
  Report Type: Report from Study
  Country: IN (occurrence: IN)
  Receive Date: 20210629
  Receipt Date: 20210629
  Transmission Date: 20210717
  Serious: Yes (Other)
  Sender: FDA-Public Use
  Company Number: IN-UCBSA-2021030880

PATIENT

DRUGS (1)
  1. LEVETIRACETAM. [Suspect]
     Active Substance: LEVETIRACETAM
     Indication: SEIZURE
     Dosage: UNKNOWN DOSE

REACTIONS (10)
  - Hypotension [Unknown]
  - Seizure [Unknown]
  - Oral pain [Unknown]
  - Chills [Unknown]
  - Pyrexia [Unknown]
  - Rash [Unknown]
  - Restlessness [Unknown]
  - Product use issue [Unknown]
  - Respiratory depression [Unknown]
  - Tremor [Unknown]
